FAERS Safety Report 5385120-X (Version None)
Quarter: 2007Q3

REPORT INFORMATION
  Report Type: 
  Country: None (occurrence: None)
  Receive Date: 20070706
  Receipt Date: 20070706
  Transmission Date: 20080115
  Serious: Yes (Hospitalization)
  Sender: FDA-Public Use
  Company Number: None

PATIENT
  Sex: Female
  Weight: 61.2 kg

DRUGS (2)
  1. FLUOROURACIL [Suspect]
     Indication: PANCREATIC CARCINOMA
     Dosage: 2400 MG/M2 OVER 48 HRS IV AMBULATORY PUMP
     Route: 042
     Dates: start: 20070607, end: 20070609
  2. BEVACIZUMAB [Suspect]
     Indication: PANCREATIC CARCINOMA
     Dosage: 10 MG/KG OVER 90 MIN. IV
     Route: 042
     Dates: start: 20070607

REACTIONS (1)
  - CENTRAL LINE INFECTION [None]
